FAERS Safety Report 18651558 (Version 1)
Quarter: 2020Q4

REPORT INFORMATION
  Report Type: Report from Study
  Country: MX (occurrence: MX)
  Receive Date: 20201223
  Receipt Date: 20201223
  Transmission Date: 20210114
  Serious: Yes (Other)
  Sender: FDA-Public Use
  Company Number: MX-BRISTOL-MYERS SQUIBB COMPANY-BMS-2020-070987

PATIENT
  Age: 60 Year
  Sex: Male

DRUGS (1)
  1. DASATINIB. [Suspect]
     Active Substance: DASATINIB
     Indication: CHRONIC MYELOID LEUKAEMIA
     Dosage: 100 MILLIGRAM, QD
     Route: 048
     Dates: start: 20180315, end: 20201218

REACTIONS (3)
  - Pneumonia [Recovering/Resolving]
  - Drug ineffective [Recovered/Resolved]
  - Pleural disorder [Recovered/Resolved]

NARRATIVE: CASE EVENT DATE: 20200828
